FAERS Safety Report 8364298-X (Version None)
Quarter: 2012Q2

REPORT INFORMATION
  Report Type: 
  Country: None (occurrence: None)
  Receive Date: 20120516
  Receipt Date: 20120508
  Transmission Date: 20120825
  Serious: Yes (Hospitalization, Other)
  Sender: FDA-Public Use
  Company Number: US-ACTELION-A-US2010-35255

PATIENT

DRUGS (1)
  1. TRACLEER [Suspect]
     Indication: PULMONARY ARTERIAL HYPERTENSION
     Dosage: UNK
     Route: 048
     Dates: start: 20091123, end: 20120508

REACTIONS (7)
  - DYSPNOEA [None]
  - NASOPHARYNGITIS [None]
  - MALAISE [None]
  - PULMONARY OEDEMA [None]
  - COUGH [None]
  - PRODUCTIVE COUGH [None]
  - PNEUMONIA [None]
